FAERS Safety Report 17407993 (Version 7)
Quarter: 2020Q3

REPORT INFORMATION
  Report Type: Spontaneous
  Country: US (occurrence: US)
  Receive Date: 20200212
  Receipt Date: 20200728
  Transmission Date: 20201102
  Serious: Yes (Other)
  Sender: FDA-Public Use
  Company Number: US-PFIZER INC-2019449383

PATIENT
  Age: 73 Year
  Sex: Male

DRUGS (1)
  1. SUTENT [Suspect]
     Active Substance: SUNITINIB MALATE
     Indication: RENAL CANCER
     Dosage: 50 MG, CYCLIC (DAILY 14 DAYS ON AND 7 DAYS OFF) (DAILY, TWO WEEKS ON AND 1 WEEK OFF)

REACTIONS (2)
  - SARS-CoV-2 test positive [Unknown]
  - Infection [Unknown]
